FAERS Safety Report 7655565-3 (Version None)
Quarter: 2011Q3

REPORT INFORMATION
  Report Type: 
  Country: None (occurrence: None)
  Receive Date: 20110804
  Receipt Date: 20110802
  Transmission Date: 20111222
  Serious: Yes (Death, Hospitalization)
  Sender: FDA-Public Use
  Company Number: PHHY2011CA50258

PATIENT
  Sex: Male

DRUGS (1)
  1. CLOZAPINE [Suspect]
     Indication: SCHIZOPHRENIA
     Dates: start: 19991027, end: 20110512

REACTIONS (4)
  - CONFUSIONAL STATE [None]
  - HYPOXIA [None]
  - DEATH [None]
  - PLEURAL EFFUSION [None]
